FAERS Safety Report 8510930-7 (Version None)
Quarter: 2012Q3

REPORT INFORMATION
  Report Type: 
  Country: None (occurrence: None)
  Receive Date: 20120703
  Receipt Date: 20120620
  Transmission Date: 20120928
  Serious: Yes (Death, Hospitalization, Other)
  Sender: FDA-Public Use
  Company Number: 2012MA007798

PATIENT
  Age: 62 Year
  Sex: Female

DRUGS (7)
  1. AVASTIN [Suspect]
     Indication: COLON CANCER METASTATIC
     Dosage: 312.5 MG; 2X A WEEK; IV
     Route: 042
     Dates: start: 20111115, end: 20120313
  2. LANSOPRAZOLE [Concomitant]
  3. CO-DYDRAMOL [Concomitant]
  4. FLUOROURACIL [Suspect]
     Indication: PRODUCT USED FOR UNKNOWN INDICATION
     Dosage: 550 MG; 1X OVER 48 HRS; BOLUS
     Route: 040
     Dates: start: 20111101, end: 20111103
  5. AMLODIPINE [Concomitant]
  6. IRINOTECAN HYDROCHLORIDE [Suspect]
     Indication: COLON CANCER METASTATIC
     Dosage: 300 MG; 2X A WEEK; IV
     Route: 042
     Dates: start: 20111101, end: 20120313
  7. FLUOROURACIL [Suspect]
     Indication: COLON CANCER METASTATIC
     Dosage: 550 MG; 2X A WEEK; IV
     Route: 042
     Dates: start: 20111101, end: 20120313

REACTIONS (4)
  - UPPER GASTROINTESTINAL HAEMORRHAGE [None]
  - HYPOTENSION [None]
  - PULMONARY EMBOLISM [None]
  - SMALL INTESTINAL OBSTRUCTION [None]
